FAERS Safety Report 20066602 (Version 1)
Quarter: 2021Q4

REPORT INFORMATION
  Report Type: Spontaneous
  Country: US (occurrence: US)
  Receive Date: 20211115
  Receipt Date: 20211115
  Transmission Date: 20220304
  Serious: No
  Sender: FDA-Public Use
  Company Number: US-TEVA-2021-US-1974728

PATIENT
  Age: 80 Year
  Sex: Male

DRUGS (1)
  1. AUSTEDO [Suspect]
     Active Substance: DEUTETRABENAZINE
     Indication: Tremor
     Route: 065

REACTIONS (2)
  - Product use in unapproved indication [Unknown]
  - Aphasia [Unknown]

NARRATIVE: CASE EVENT DATE: 20210101
